FAERS Safety Report 6845489-3 (Version None)
Quarter: 2010Q3

REPORT INFORMATION
  Report Type: 
  Country: None (occurrence: None)
  Receive Date: 20100715
  Receipt Date: 20070821
  Transmission Date: 20110219
  Serious: No
  Sender: FDA-Public Use
  Company Number: US-PFIZER INC-2007070065

PATIENT
  Sex: Female
  Weight: 59.1 kg

DRUGS (3)
  1. CHANTIX [Suspect]
     Indication: ALCOHOL USE
     Dates: start: 20070801, end: 20070820
  2. ALL OTHER THERAPEUTIC PRODUCTS [Concomitant]
     Dates: start: 20030101
  3. DETROL [Concomitant]

REACTIONS (2)
  - MALAISE [None]
  - NAUSEA [None]
